FAERS Safety Report 10596365 (Version 2)
Quarter: 2014Q4

REPORT INFORMATION
  Report Type: Spontaneous
  Country: FR (occurrence: FR)
  Receive Date: 20141120
  Receipt Date: 20141120
  Transmission Date: 20150529
  Serious: Yes (Death, Life-Threatening, Other)
  Sender: FDA-Public Use
  Company Number: FR-PFIZER INC-2014308006

PATIENT
  Age: 71 Year
  Sex: Male

DRUGS (4)
  1. 5-FU [Concomitant]
     Active Substance: FLUOROURACIL
     Indication: COLORECTAL CANCER METASTATIC
     Dosage: 2400 MG/M2 BY CONTINUOUS INFUSION OVER 44 H
     Route: 042
  2. 5-FU [Concomitant]
     Active Substance: FLUOROURACIL
     Dosage: 400 MG/M2, AS A BOLUS ON DAY 1
     Route: 040
  3. IRINOTECAN HCL [Suspect]
     Active Substance: IRINOTECAN HYDROCHLORIDE
     Indication: COLORECTAL CANCER METASTATIC
     Dosage: 180 MG/M2, ON DAY 1
     Dates: start: 20050701
  4. CALCIUM FOLINATE [Concomitant]
     Active Substance: LEUCOVORIN CALCIUM
     Indication: COLORECTAL CANCER METASTATIC
     Dosage: 400 MG/M2, ON DAY 1

REACTIONS (3)
  - Haematotoxicity [Not Recovered/Not Resolved]
  - Septic shock [Fatal]
  - Febrile neutropenia [Not Recovered/Not Resolved]
